FAERS Safety Report 7716565-8 (Version None)
Quarter: 2011Q3

REPORT INFORMATION
  Report Type: 
  Country: None (occurrence: None)
  Receive Date: 20110829
  Receipt Date: 20110818
  Transmission Date: 20111222
  Serious: Yes (Other)
  Sender: FDA-Public Use
  Company Number: CN-ASTRAZENECA-2011SE49567

PATIENT
  Age: 72 Year
  Sex: Male

DRUGS (1)
  1. LIDOCAINE [Suspect]
     Dosage: 2% OF 100 MG DRUG INFUSED 1 ML/MIN
     Route: 041

REACTIONS (3)
  - UNRESPONSIVE TO STIMULI [None]
  - LOSS OF CONSCIOUSNESS [None]
  - MENTAL DISORDER [None]
